FAERS Safety Report 12177322 (Version 1)
Quarter: 2016Q1

REPORT INFORMATION
  Report Type: Spontaneous
  Country: US (occurrence: US)
  Receive Date: 20160315
  Receipt Date: 20160315
  Transmission Date: 20160526
  Serious: Yes (Hospitalization)
  Sender: FDA-Public Use
  Company Number: US-BEH-2016059710

PATIENT
  Sex: Female
  Weight: 65 kg

DRUGS (28)
  1. DIPHENHYDRAMINE. [Concomitant]
     Active Substance: DIPHENHYDRAMINE
  2. EPIPEN [Concomitant]
     Active Substance: EPINEPHRINE
  3. OXYCODONE [Concomitant]
     Active Substance: OXYCODONE
  4. PREDNISONE. [Concomitant]
     Active Substance: PREDNISONE
  5. LIDOCAINE/PRILOCAINE [Concomitant]
  6. MELATONIN [Concomitant]
     Active Substance: MELATONIN
  7. SPIRIVA [Concomitant]
     Active Substance: TIOTROPIUM BROMIDE MONOHYDRATE
  8. PAXIL [Concomitant]
     Active Substance: PAROXETINE HYDROCHLORIDE
  9. MUCINEX [Concomitant]
     Active Substance: GUAIFENESIN
  10. CALTRATE [Concomitant]
     Active Substance: CALCIUM CARBONATE
  11. ALBUTEROL. [Concomitant]
     Active Substance: ALBUTEROL
  12. AMLODIPINE [Concomitant]
     Active Substance: AMLODIPINE BESYLATE
  13. FISH OIL [Concomitant]
     Active Substance: FISH OIL
  14. HEPARIN [Concomitant]
     Active Substance: HEPARIN SODIUM
  15. LOVENOX [Concomitant]
     Active Substance: ENOXAPARIN SODIUM
  16. MAGNESIUM [Concomitant]
     Active Substance: MAGNESIUM
  17. TYLENOL [Concomitant]
     Active Substance: ACETAMINOPHEN
  18. PULMICORT TURBUHALER [Concomitant]
     Active Substance: BUDESONIDE
  19. ZEMAIRA [Suspect]
     Active Substance: .ALPHA.1-PROTEINASE INHIBITOR HUMAN
     Indication: ALPHA-1 ANTI-TRYPSIN DEFICIENCY
     Route: 042
     Dates: start: 20100104
  20. OXYGEN. [Concomitant]
     Active Substance: OXYGEN
  21. HYDROXYZINE [Concomitant]
     Active Substance: HYDROXYZINE\HYDROXYZINE HYDROCHLORIDE
  22. PROAIR HFA [Concomitant]
     Active Substance: ALBUTEROL SULFATE
  23. ALKA SELTZER [Concomitant]
     Active Substance: ANHYDROUS CITRIC ACID\ASPIRIN\SODIUM BICARBONATE
  24. PRILOSEC [Concomitant]
     Active Substance: OMEPRAZOLE MAGNESIUM
  25. SODIUM CHLORIDE. [Concomitant]
     Active Substance: SODIUM CHLORIDE
  26. ROPINIROLE. [Concomitant]
     Active Substance: ROPINIROLE
  27. THEOPHYLLINE [Concomitant]
     Active Substance: THEOPHYLLINE ANHYDROUS
  28. CLARITIN [Concomitant]
     Active Substance: LORATADINE

REACTIONS (3)
  - Wound infection staphylococcal [Recovering/Resolving]
  - Decubitus ulcer [Recovering/Resolving]
  - Hospitalisation [Recovered/Resolved]
